FAERS Safety Report 19820097 (Version 2)
Quarter: 2021Q3

REPORT INFORMATION
  Report Type: Spontaneous
  Country: US (occurrence: US)
  Receive Date: 20210913
  Receipt Date: 20210916
  Transmission Date: 20211014
  Serious: No
  Sender: FDA-Public Use
  Company Number: US-GLAXOSMITHKLINE-US2021AMR189666

PATIENT
  Sex: Female

DRUGS (2)
  1. ZEJULA [Suspect]
     Active Substance: NIRAPARIB
     Indication: PRODUCT USED FOR UNKNOWN INDICATION
     Dosage: 300 MG, QD
     Dates: start: 202107
  2. ZEJULA [Suspect]
     Active Substance: NIRAPARIB
     Dosage: 100 MG, QD
     Dates: start: 20210831

REACTIONS (7)
  - Dyspnoea [Not Recovered/Not Resolved]
  - Dry mouth [Unknown]
  - Movement disorder [Unknown]
  - Constipation [Not Recovered/Not Resolved]
  - Drug monitoring procedure not performed [Unknown]
  - Gait disturbance [Unknown]
  - Dizziness [Unknown]
